FAERS Safety Report 22646555 (Version 1)
Quarter: 2023Q2

REPORT INFORMATION
  Report Type: Spontaneous
  Country: US (occurrence: US)
  Receive Date: 20230627
  Receipt Date: 20230627
  Transmission Date: 20230721
  Serious: No
  Sender: FDA-Public Use
  Company Number: US-ELI_LILLY_AND_COMPANY-US202306015888

PATIENT
  Sex: Female

DRUGS (2)
  1. FORTEO [Suspect]
     Active Substance: TERIPARATIDE
     Indication: Osteoporosis
     Dosage: UNK UNK, UNKNOWN
     Route: 065
  2. FORTEO [Suspect]
     Active Substance: TERIPARATIDE
     Dosage: UNK UNK, UNKNOWN
     Route: 065

REACTIONS (10)
  - Intercepted product storage error [Unknown]
  - Eye disorder [Unknown]
  - Balance disorder [Unknown]
  - Ulcer [Unknown]
  - Fall [Unknown]
  - Rhinorrhoea [Unknown]
  - Stress [Unknown]
  - Vertigo [Unknown]
  - Dizziness [Unknown]
  - Cough [Unknown]
